FAERS Safety Report 16530670 (Version 1)
Quarter: 2019Q3

REPORT INFORMATION
  Report Type: Spontaneous
  Country: IT (occurrence: IT)
  Receive Date: 20190704
  Receipt Date: 20190704
  Transmission Date: 20191004
  Serious: Yes (Other)
  Sender: FDA-Public Use
  Company Number: IT-TEVA-2019-IT-1072629

PATIENT
  Age: 65 Year
  Sex: Male

DRUGS (9)
  1. ALDACTONE 25 MG CAPSULE RIGIDE [Concomitant]
     Route: 048
  2. ANTRA 20 MG CAPSULE RIGIDE GASTRORESISTENTI [Concomitant]
     Route: 048
  3. ELIQUIS [Concomitant]
     Active Substance: APIXABAN
     Route: 048
  4. SEVIKAR 20 MG/5 MG COMPRESSE RIVESTITE CON FILM [Concomitant]
     Route: 048
  5. BISOPROLOL HEMIFUMARATE [Suspect]
     Active Substance: BISOPROLOL FUMARATE
     Indication: CARDIAC FAILURE
     Route: 048
     Dates: start: 20181003
  6. AMIODARONE SANDOZ [Concomitant]
     Active Substance: AMIODARONE
     Route: 048
  7. LASIX [Concomitant]
     Active Substance: FUROSEMIDE
     Indication: HYPERTENSION
     Route: 048
  8. CARDIOASPIRIN 100 MG COMPRESSE GASTRORESISTENTI [Concomitant]
     Active Substance: ASPIRIN
     Route: 048
  9. TORVAST 40 MG COMPRESSE RIVESTITE CON FILM [Concomitant]
     Active Substance: ATORVASTATIN
     Indication: DYSLIPIDAEMIA
     Route: 048

REACTIONS (1)
  - Atrioventricular block [Recovering/Resolving]

NARRATIVE: CASE EVENT DATE: 20190603
